FAERS Safety Report 17101150 (Version 2)
Quarter: 2019Q4

REPORT INFORMATION
  Report Type: Spontaneous
  Country: US (occurrence: US)
  Receive Date: 20191202
  Receipt Date: 20191226
  Transmission Date: 20200122
  Serious: Yes (Hospitalization)
  Sender: FDA-Public Use
  Company Number: US-INCYTE CORPORATION-2019IN011664

PATIENT

DRUGS (2)
  1. JAKAFI [Suspect]
     Active Substance: RUXOLITINIB
     Dosage: 5 MILLIGRAM, BID
     Route: 048
     Dates: start: 20181220
  2. JAKAFI [Suspect]
     Active Substance: RUXOLITINIB
     Indication: AUTOIMMUNE HAEMOLYTIC ANAEMIA
     Dosage: 5 MILLIGRAM, BID
     Route: 048
     Dates: start: 20181220

REACTIONS (3)
  - Therapy non-responder [Not Recovered/Not Resolved]
  - Off label use [Unknown]
  - Infection [Unknown]

NARRATIVE: CASE EVENT DATE: 20181220
